FAERS Safety Report 19729081 (Version 1)
Quarter: 2021Q3

REPORT INFORMATION
  Report Type: Other
  Country: PL (occurrence: PL)
  Receive Date: 20210821
  Receipt Date: 20210821
  Transmission Date: 20211014
  Serious: Yes (Other)
  Sender: FDA-Public Use
  Company Number: PL-ROCHE-2893490

PATIENT

DRUGS (2)
  1. RITUXIMAB. [Suspect]
     Active Substance: RITUXIMAB
     Indication: AUTOIMMUNE HAEMOLYTIC ANAEMIA
     Route: 065
  2. RITUXIMAB. [Suspect]
     Active Substance: RITUXIMAB
     Indication: HEPATITIS
     Route: 065

REACTIONS (4)
  - Hypogammaglobulinaemia [Unknown]
  - Lymphopenia [Unknown]
  - Drug effective for unapproved indication [Unknown]
  - Off label use [Unknown]
